FAERS Safety Report 10135932 (Version 2)
Quarter: 2014Q2

REPORT INFORMATION
  Report Type: Spontaneous
  Country: CN (occurrence: CN)
  Receive Date: 20140429
  Receipt Date: 20140517
  Transmission Date: 20141212
  Serious: Yes (Hospitalization)
  Sender: FDA-Public Use
  Company Number: CN-JNJFOC-20140410219

PATIENT
  Age: 31 Year
  Sex: Male
  Weight: 51.5 kg

DRUGS (4)
  1. TYLENOL [Suspect]
     Indication: UPPER RESPIRATORY TRACT INFECTION
     Route: 048
     Dates: start: 20130526, end: 20130529
  2. XUESHUANTONG [Concomitant]
     Indication: CARDIOVASCULAR DISORDER
     Route: 042
     Dates: start: 20130520, end: 20130529
  3. ROSUVASTATIN CALCIUM [Concomitant]
     Indication: HYPERLIPIDAEMIA
     Route: 048
     Dates: start: 20130520, end: 20130529
  4. REPAGLINIDE [Concomitant]
     Indication: DIABETES MELLITUS
     Route: 048
     Dates: start: 20130529, end: 20130529

REACTIONS (1)
  - Urticaria [Recovered/Resolved]
